FAERS Safety Report 7733609-8 (Version None)
Quarter: 2011Q3

REPORT INFORMATION
  Report Type: 
  Country: None (occurrence: None)
  Receive Date: 20110907
  Receipt Date: 20110830
  Transmission Date: 20111222
  Serious: Yes (Other)
  Sender: FDA-Public Use
  Company Number: GB-JNJFOC-20110900584

PATIENT
  Sex: Female

DRUGS (4)
  1. INFLIXIMAB, RECOMBINANT [Suspect]
     Route: 042
     Dates: start: 20060925
  2. METHOTREXATE [Concomitant]
     Dates: start: 20020904
  3. INFLIXIMAB, RECOMBINANT [Suspect]
     Indication: RHEUMATOID ARTHRITIS
     Route: 042
     Dates: start: 20020904
  4. SULFASALAZINE [Concomitant]
     Dates: start: 20020904

REACTIONS (1)
  - CARCINOMA IN SITU OF SKIN [None]
